FAERS Safety Report 15271897 (Version 1)
Quarter: 2018Q3

REPORT INFORMATION
  Report Type: Spontaneous
  Country: US (occurrence: US)
  Receive Date: 20180813
  Receipt Date: 20180813
  Transmission Date: 20181010
  Serious: No
  Sender: FDA-Public Use
  Company Number: US-BAUSCH-BL-2018-013297

PATIENT
  Age: 59 Year
  Sex: Male
  Weight: 90.8 kg

DRUGS (1)
  1. RELISTOR [Suspect]
     Active Substance: METHYLNALTREXONE BROMIDE
     Indication: CONSTIPATION
     Dosage: BEFORE FIRST MEAL
     Route: 048
     Dates: start: 20180429, end: 20180429

REACTIONS (5)
  - Asthenia [Recovered/Resolved]
  - Feeding disorder [Recovered/Resolved]
  - Fear of death [Recovered/Resolved]
  - Gait inability [Recovered/Resolved]
  - Abdominal pain upper [Recovered/Resolved]

NARRATIVE: CASE EVENT DATE: 20180429
